FAERS Safety Report 4658431-0 (Version None)
Quarter: 2005Q2

REPORT INFORMATION
  Report Type: 
  Country: None (occurrence: None)
  Receive Date: 20050510
  Receipt Date: 20050510
  Transmission Date: 20051028
  Serious: Yes (Other)
  Sender: FDA-Public Use
  Company Number: None

PATIENT
  Age: 11 Year
  Sex: Male
  Weight: 45.8133 kg

DRUGS (1)
  1. WELLBUTRIN SR [Suspect]
     Dosage: 100 MG PO BID
     Route: 048
     Dates: start: 20040309, end: 20050509

REACTIONS (1)
  - THERAPEUTIC RESPONSE UNEXPECTED WITH DRUG SUBSTITUTION [None]
